FAERS Safety Report 5669550-4 (Version None)
Quarter: 2008Q1

REPORT INFORMATION
  Report Type: 
  Country: None (occurrence: None)
  Receive Date: 20080317
  Receipt Date: 20080310
  Transmission Date: 20080703
  Serious: Yes (Death)
  Sender: FDA-Public Use
  Company Number: PHBS2008DE03109

PATIENT
  Age: 71 Year
  Sex: Female

DRUGS (64)
  1. PANTOZOL [Suspect]
     Indication: GASTROINTESTINAL ULCER
     Dosage: 40 MG, QD
     Route: 048
     Dates: start: 20041007, end: 20041031
  2. TAVOR [Suspect]
     Indication: SLEEP DISORDER
     Dosage: 1 DF, QD
     Route: 048
     Dates: start: 20041014, end: 20041014
  3. TAVOR [Suspect]
     Dosage: 1 DF, QD
     Route: 048
     Dates: start: 20041030, end: 20041030
  4. ACETYLSALICYLIC ACID [Suspect]
     Indication: THROMBOSIS PROPHYLAXIS
     Dosage: 100 MG, QD
     Route: 048
     Dates: start: 20040729, end: 20041107
  5. ALLOPURINOL [Suspect]
     Indication: HYPERURICAEMIA
     Dosage: 1 DF, QD
     Route: 048
     Dates: start: 20041024, end: 20041102
  6. BELOC ZOK [Suspect]
     Indication: ACUTE MYOCARDIAL INFARCTION
     Route: 048
     Dates: start: 20041012, end: 20041031
  7. CARBAMAZEPINE [Suspect]
     Indication: AGITATION
     Dosage: 5 DF, BID
     Route: 048
     Dates: start: 20041101, end: 20041102
  8. CLEXANE [Suspect]
     Indication: THROMBOSIS
     Dosage: 40 ML, BID
     Route: 058
     Dates: start: 20041011, end: 20041028
  9. DELIX [Suspect]
     Indication: ESSENTIAL HYPERTENSION
     Dosage: 2.5 MG, QD
     Route: 048
     Dates: start: 20041007, end: 20041031
  10. DIGITOXIN INJ [Suspect]
     Indication: CARDIAC FAILURE
     Route: 048
     Dates: start: 20041103, end: 20041111
  11. DIGITOXIN INJ [Suspect]
     Route: 048
     Dates: start: 20041014, end: 20041027
  12. DIPIPERON [Suspect]
     Indication: DISORIENTATION
     Dosage: 1 DF, QD
     Route: 048
     Dates: start: 20041103, end: 20041104
  13. DISALUNIL [Suspect]
     Indication: ESSENTIAL HYPERTENSION
     Dosage: 25 MG, QD
     Route: 048
     Dates: start: 20041012, end: 20041031
  14. EUNERPAN [Suspect]
     Indication: SLEEP DISORDER
     Dosage: 1 ML, QD
     Route: 048
     Dates: start: 20041102, end: 20041107
  15. EUNERPAN [Suspect]
     Dosage: 1 ML, QD
     Route: 048
     Dates: start: 20041030, end: 20041031
  16. FERRO ^SANOL^ [Suspect]
     Indication: MINERAL SUPPLEMENTATION
     Dosage: 1 DF, QD
     Route: 048
     Dates: start: 20041103, end: 20041107
  17. FURESIS [Suspect]
     Indication: POLYURIA
     Dosage: 40 MG, QD
     Route: 042
     Dates: start: 20041102, end: 20041111
  18. FUROSEMIDE [Suspect]
     Indication: POLYURIA
     Dosage: 10 MG/DAY
     Route: 048
     Dates: start: 20041101, end: 20041101
  19. GLUCOSE [Suspect]
     Indication: HYPOGLYCAEMIA
     Dosage: UNK, UNK
     Route: 042
     Dates: start: 20041102, end: 20041102
  20. GLUCOSE [Suspect]
     Route: 042
     Dates: start: 20041108, end: 20041108
  21. HUMALOG [Suspect]
     Indication: DIABETES MELLITUS
     Dosage: 1 DF, TID
     Route: 058
     Dates: start: 20040729, end: 20041110
  22. IRENAT [Suspect]
     Indication: HYPERTHYROIDISM
     Dosage: 20 GTT, TID
     Route: 048
     Dates: start: 20041006, end: 20041105
  23. ISCOVER [Suspect]
     Indication: THROMBOSIS PROPHYLAXIS
     Dosage: 75 MG, QD
     Route: 048
     Dates: start: 20041005, end: 20041107
  24. JONOSTERIL [Suspect]
     Indication: FLUID REPLACEMENT
     Route: 042
     Dates: start: 20041002, end: 20041111
  25. KALINOR RETARD [Suspect]
     Indication: HYPOKALAEMIA
     Route: 048
     Dates: start: 20041101, end: 20041101
  26. KALINOR RETARD [Suspect]
     Route: 048
     Dates: start: 20041025, end: 20041027
  27. KALINOR [Suspect]
     Indication: HYPOKALAEMIA
     Dosage: 1 DF, QD
     Route: 048
     Dates: start: 20001102, end: 20041104
  28. KALINOR [Suspect]
     Dosage: 1 DF, QD
     Route: 048
     Dates: start: 20041023, end: 20041025
  29. KALINOR [Suspect]
     Dosage: 1 DF, QD
     Route: 048
     Dates: start: 20041015, end: 20041020
  30. LANTUS [Suspect]
     Indication: DIABETES MELLITUS
     Route: 058
     Dates: start: 20040729, end: 20041110
  31. LENDORMIN [Suspect]
     Indication: SLEEP DISORDER
     Dosage: 1 DF, QD
     Route: 048
     Dates: start: 20041103, end: 20041103
  32. LENDORMIN [Suspect]
     Dosage: 1 DF, QD
     Route: 048
     Dates: start: 20041015, end: 20041024
  33. LENDORMIN [Suspect]
     Dosage: 1 DF, QD
     Route: 048
     Dates: start: 20041110, end: 20041110
  34. LOPERAMIDE HCL [Suspect]
     Indication: DIARRHOEA
     Dosage: 2 DF, QD
     Route: 048
     Dates: start: 20041031, end: 20041031
  35. METOCLOPRAMIDE [Suspect]
     Indication: NAUSEA
     Dosage: UNK GTT, QD
     Route: 048
     Dates: start: 20041025, end: 20041028
  36. METOCLOPRAMIDE [Suspect]
     Dosage: UNK GTT, QD
     Route: 048
     Dates: start: 20041023, end: 20041023
  37. METOCLOPRAMIDE [Suspect]
     Route: 042
     Dates: start: 20041024, end: 20041025
  38. METOPROLOL TARTRATE [Suspect]
     Dosage: 200 MG, QD
     Route: 048
     Dates: start: 20041101, end: 20041107
  39. POTASSIUM CHLORIDE [Suspect]
     Dosage: 40 MMOL, QD
     Route: 042
     Dates: start: 20041027, end: 20041027
  40. POTASSIUM CHLORIDE [Suspect]
     Dosage: 40 MMOL, QD
     Route: 042
     Dates: start: 20041102, end: 20041104
  41. RAMIPRIL [Suspect]
     Indication: ESSENTIAL HYPERTENSION
     Dosage: 5 DF, QD
     Route: 048
     Dates: start: 20041101, end: 20041102
  42. SODIUM CHLORIDE INJ [Suspect]
     Indication: FLUID REPLACEMENT
     Dosage: 500 ML, QD
     Route: 042
     Dates: start: 20041024, end: 20041027
  43. SORTIS [Suspect]
     Indication: HYPERCHOLESTEROLAEMIA
     Dosage: 40 MG, QD
     Route: 048
     Dates: start: 20040729, end: 20041102
  44. THIAMAZOLE [Suspect]
     Indication: HYPERTHYROIDISM
     Dosage: 50 MG, UNK
     Route: 048
     Dates: start: 20041006, end: 20041105
  45. TOREM [Suspect]
     Indication: RENAL FAILURE
     Route: 048
     Dates: start: 20041012, end: 20041031
  46. TOREM [Suspect]
     Route: 048
     Dates: start: 20041102, end: 20041105
  47. TAZOBACTAM [Concomitant]
     Dosage: 4.5 MG, TID
     Dates: start: 20041007, end: 20041015
  48. PERFALGAN [Concomitant]
     Dosage: 1 G, UNK
     Dates: start: 20041014, end: 20041014
  49. PERFALGAN [Concomitant]
     Dates: start: 20041021, end: 20041021
  50. NOVALGIN [Concomitant]
     Dosage: 20 GTT, QD
     Dates: start: 20041017, end: 20041017
  51. ROHYPNOL [Concomitant]
     Dosage: 1 MG, QD
     Dates: start: 20041018, end: 20041018
  52. HALOPERIDOL [Concomitant]
     Dosage: 20 GTT, BID
     Dates: start: 20041104, end: 20041105
  53. FENISTIL [Concomitant]
     Dosage: 1 DF, TID
     Dates: start: 20041104, end: 20041107
  54. FENISTIL [Concomitant]
     Dosage: 1 DF, QD
     Dates: start: 20041105, end: 20041105
  55. PROTHAZIN [Concomitant]
     Dosage: 5 DF, BID
     Dates: start: 20041105, end: 20041108
  56. PREDNISOLUT [Concomitant]
     Dates: start: 20041105, end: 20041110
  57. UNACID [Concomitant]
     Dosage: 1 G, TID
     Dates: start: 20041106, end: 20041106
  58. DIGITOXIN INJ [Concomitant]
     Dosage: 5 DF/DAY
     Dates: start: 20041106, end: 20041108
  59. MORPHINE [Concomitant]
     Dosage: 1 DF, BID
     Dates: start: 20041106, end: 20041109
  60. DIFLUCAN [Concomitant]
     Dosage: 1 DF, QD
     Dates: start: 20041106, end: 20041110
  61. AMPHO-MORONAL [Concomitant]
     Dosage: 1 DF, TID
     Dates: start: 20041106, end: 20041110
  62. TAVANIC [Concomitant]
     Dosage: 500 MG, QD
     Dates: start: 20041107, end: 20041110
  63. POLYSPECTRAN TROPFEN [Concomitant]
     Dosage: 1 DF, TID
     Dates: start: 20041108
  64. KLACID [Suspect]
     Indication: PNEUMONIA
     Dosage: 250 MG, UNK
     Route: 048
     Dates: start: 20041018, end: 20041024

REACTIONS (10)
  - BLISTER [None]
  - CONJUNCTIVITIS [None]
  - LIP EROSION [None]
  - NIKOLSKY'S SIGN [None]
  - OCULAR HYPERAEMIA [None]
  - ORAL DISORDER [None]
  - PRURITUS [None]
  - PURPURA [None]
  - STEVENS-JOHNSON SYNDROME [None]
  - SWOLLEN TONGUE [None]
